FAERS Safety Report 6207071-0 (Version None)
Quarter: 2009Q2

REPORT INFORMATION
  Report Type: 
  Country: None (occurrence: None)
  Receive Date: 20090528
  Receipt Date: 20090522
  Transmission Date: 20091009
  Serious: Yes (Hospitalization)
  Sender: FDA-Public Use
  Company Number: US-BIOGENIDEC-2009BI012212

PATIENT
  Age: 41 Year
  Sex: Male

DRUGS (2)
  1. TYSABRI [Suspect]
     Indication: MULTIPLE SCLEROSIS
     Route: 042
     Dates: start: 20050101, end: 20050201
  2. TYSABRI [Suspect]
     Route: 042
     Dates: start: 20080910

REACTIONS (3)
  - CANDIDA SEPSIS [None]
  - CANDIDURIA [None]
  - URINARY RETENTION [None]
